FAERS Safety Report 23046402 (Version 2)
Quarter: 2023Q4

REPORT INFORMATION
  Report Type: Spontaneous
  Country: GB (occurrence: GB)
  Receive Date: 20231009
  Receipt Date: 20231020
  Transmission Date: 20240109
  Serious: Yes (Other)
  Sender: FDA-Public Use
  Company Number: None

PATIENT
  Age: 51 Year
  Sex: Female
  Weight: 56 kg

DRUGS (4)
  1. EXEMESTANE [Suspect]
     Active Substance: EXEMESTANE
     Indication: Breast cancer stage II
     Dosage: 25 MG, 1X/DAY
     Dates: start: 20200921, end: 20201120
  2. EXEMESTANE [Suspect]
     Active Substance: EXEMESTANE
     Dosage: 25 MG, 1X/DAY
  3. ANASTROZOLE [Suspect]
     Active Substance: ANASTROZOLE
     Indication: Breast cancer stage II
     Dosage: 1 MG, 1X/DAY
     Dates: start: 20201120, end: 20201209
  4. LETROZOLE [Suspect]
     Active Substance: LETROZOLE
     Indication: Breast cancer stage II
     Dosage: 2.5 MG, 1X/DAY
     Dates: start: 202101, end: 20210529

REACTIONS (6)
  - Suicidal ideation [Unknown]
  - Tendonitis [Recovering/Resolving]
  - Insomnia [Unknown]
  - Disease recurrence [Unknown]
  - Gait disturbance [Unknown]
  - Anxiety [Unknown]

NARRATIVE: CASE EVENT DATE: 20201026
